FAERS Safety Report 6218467-5 (Version None)
Quarter: 2009Q2

REPORT INFORMATION
  Report Type: 
  Country: None (occurrence: None)
  Receive Date: 20090608
  Receipt Date: 20090526
  Transmission Date: 20091009
  Serious: Yes (Hospitalization, Congenital Anomaly)
  Sender: FDA-Public Use
  Company Number: B0571392A

PATIENT
  Sex: Male
  Weight: 0.9 kg

DRUGS (5)
  1. RETROVIR [Suspect]
     Indication: ANTIVIRAL PROPHYLAXIS
     Route: 042
     Dates: start: 20090308, end: 20090317
  2. COMBIVIR [Suspect]
     Dates: start: 20090301, end: 20090308
  3. CLAFORAN [Suspect]
     Route: 042
     Dates: start: 20090313
  4. TOTAPEN [Suspect]
     Route: 042
     Dates: start: 20090313
  5. KALETRA [Concomitant]
     Dates: start: 20090301, end: 20090308

REACTIONS (8)
  - BASAL GANGLIA HAEMORRHAGE [None]
  - DRUG EXPOSURE DURING PREGNANCY [None]
  - INCORRECT DOSE ADMINISTERED [None]
  - INTRAVENTRICULAR HAEMORRHAGE NEONATAL [None]
  - PATENT DUCTUS ARTERIOSUS [None]
  - PREMATURE BABY [None]
  - RESPIRATORY DISTRESS [None]
  - THROMBOCYTOPENIA [None]
